FAERS Safety Report 23096259 (Version 2)
Quarter: 2023Q4

REPORT INFORMATION
  Report Type: Spontaneous
  Country: CN (occurrence: CN)
  Receive Date: 20231023
  Receipt Date: 20231024
  Transmission Date: 20240109
  Serious: Yes (Other)
  Sender: FDA-Public Use
  Company Number: CN-MLMSERVICE-20231010-4592226-3

PATIENT
  Age: 53 Year
  Sex: Female

DRUGS (6)
  1. PACLITAXEL [Suspect]
     Active Substance: PACLITAXEL
     Indication: Squamous cell carcinoma of the cervix
     Dosage: 135 MG/M2 ADMINISTERED EVERY THREE WEEKS
  2. PACLITAXEL [Suspect]
     Active Substance: PACLITAXEL
     Indication: Cervix carcinoma stage I
  3. CARBOPLATIN [Suspect]
     Active Substance: CARBOPLATIN
     Indication: Cervix carcinoma stage I
     Dosage: AUC=6 ADMINISTERED EVERY THREE WEEKS
  4. CARBOPLATIN [Suspect]
     Active Substance: CARBOPLATIN
     Indication: Squamous cell carcinoma of the cervix
  5. SINTILIMAB [Suspect]
     Active Substance: SINTILIMAB
     Indication: Cervix carcinoma stage I
     Dosage: 200 MG, CYCLIC, ON DAY 5, ADMINISTERED EVERY THREE WEEKS
  6. SINTILIMAB [Suspect]
     Active Substance: SINTILIMAB
     Indication: Squamous cell carcinoma of the cervix

REACTIONS (2)
  - Leukopenia [Unknown]
  - Hypocalcaemia [Unknown]
